FAERS Safety Report 21477923 (Version 1)
Quarter: 2022Q4

REPORT INFORMATION
  Report Type: Spontaneous
  Country: US (occurrence: None)
  Receive Date: 20221018
  Receipt Date: 20221018
  Transmission Date: 20230113
  Serious: Yes (Hospitalization)
  Sender: FDA-Public Use
  Company Number: None

PATIENT
  Age: 71 Year
  Sex: Female
  Weight: 75.6 kg

DRUGS (2)
  1. AMPHOTERICIN B [Suspect]
     Active Substance: AMPHOTERICIN B
     Indication: Osteomyelitis fungal
     Dosage: FREQUENCY : DAILY;?
     Route: 041
     Dates: start: 20221012, end: 20221012
  2. CEFTRIAXONE [Concomitant]
     Active Substance: CEFTRIAXONE
     Dates: start: 20221012, end: 20221012

REACTIONS (5)
  - Product dispensing error [None]
  - Nausea [None]
  - Vomiting [None]
  - Chills [None]
  - Wrong product administered [None]

NARRATIVE: CASE EVENT DATE: 20221012
